FAERS Safety Report 24895951 (Version 1)
Quarter: 2025Q1

REPORT INFORMATION
  Report Type: Spontaneous
  Country: KW (occurrence: KW)
  Receive Date: 20250128
  Receipt Date: 20250128
  Transmission Date: 20250409
  Serious: Yes (Death, Hospitalization)
  Sender: INCYTE
  Company Number: KW-002147023-NVSC2025KW008700

PATIENT

DRUGS (14)
  1. RUXOLITINIB [Suspect]
     Active Substance: RUXOLITINIB
     Indication: Graft versus host disease
     Route: 065
  2. RUXOLITINIB [Suspect]
     Active Substance: RUXOLITINIB
     Route: 065
  3. TACROLIMUS [Concomitant]
     Active Substance: TACROLIMUS
     Indication: Product used for unknown indication
     Route: 065
  4. TACROLIMUS [Concomitant]
     Active Substance: TACROLIMUS
     Route: 065
  5. TACROLIMUS [Concomitant]
     Active Substance: TACROLIMUS
     Route: 065
  6. METHYLPREDNISOLONE [Concomitant]
     Active Substance: METHYLPREDNISOLONE
     Indication: Product used for unknown indication
     Dosage: 60 MG, QD,WITH 4 LITERS OF OXYGEN
     Route: 065
  7. METHYLPREDNISOLONE [Concomitant]
     Active Substance: METHYLPREDNISOLONE
     Route: 065
  8. METHYLPREDNISOLONE [Concomitant]
     Active Substance: METHYLPREDNISOLONE
     Route: 065
  9. PIPERACILLIN SODIUM\TAZOBACTAM SODIUM [Concomitant]
     Active Substance: PIPERACILLIN SODIUM\TAZOBACTAM SODIUM
     Indication: Product used for unknown indication
     Route: 065
  10. VFEND [Concomitant]
     Active Substance: VORICONAZOLE
     Indication: Product used for unknown indication
     Route: 065
  11. MEROPENEM [Concomitant]
     Active Substance: MEROPENEM
     Indication: Product used for unknown indication
     Route: 065
  12. LEVOPHED [Concomitant]
     Active Substance: NOREPINEPHRINE BITARTRATE
     Indication: Product used for unknown indication
     Route: 065
  13. EPINEPHRINE HYDROCHLORIDE [Concomitant]
     Active Substance: EPINEPHRINE HYDROCHLORIDE
     Indication: Product used for unknown indication
     Route: 065
  14. VASOPRESSIN [Concomitant]
     Active Substance: VASOPRESSIN
     Indication: Product used for unknown indication
     Route: 065

REACTIONS (14)
  - Pneumonia [Fatal]
  - Rales [Fatal]
  - Lower respiratory tract infection [Fatal]
  - Antimicrobial susceptibility test [Fatal]
  - Heart rate increased [Fatal]
  - Pyrexia [Fatal]
  - Respiratory rate increased [Fatal]
  - Respiratory distress [Fatal]
  - Dyspnoea [Fatal]
  - Oxygen saturation decreased [Fatal]
  - Tachycardia [Fatal]
  - Tachypnoea [Fatal]
  - Oxygen saturation [Fatal]
  - Pneumomediastinum [Fatal]

NARRATIVE: CASE EVENT DATE: 20221101
